FAERS Safety Report 8977130 (Version 4)
Quarter: 2013Q4

REPORT INFORMATION
  Report Type: Spontaneous
  Country: US (occurrence: US)
  Receive Date: 20121220
  Receipt Date: 20131018
  Transmission Date: 20140711
  Serious: Yes (Hospitalization)
  Sender: FDA-Public Use
  Company Number: US-BIOGENIDEC-2012BI059714

PATIENT
  Age: 72 Year
  Sex: Female

DRUGS (3)
  1. AVONEX [Suspect]
     Indication: MULTIPLE SCLEROSIS
     Route: 030
     Dates: start: 20011208, end: 20030804
  2. AVONEX [Suspect]
     Indication: MULTIPLE SCLEROSIS
     Route: 030
     Dates: start: 20040301, end: 20120402
  3. PENICILLIN [Concomitant]

REACTIONS (6)
  - Blister [Recovered/Resolved]
  - Stevens-Johnson syndrome [Not Recovered/Not Resolved]
  - Tooth disorder [Recovered/Resolved]
  - Infection [Not Recovered/Not Resolved]
  - Lung infection [Recovered/Resolved]
  - Drug hypersensitivity [Not Recovered/Not Resolved]
